FAERS Safety Report 8337069-8 (Version None)
Quarter: 2012Q2

REPORT INFORMATION
  Report Type: 
  Country: None (occurrence: None)
  Receive Date: 20120504
  Receipt Date: 20120430
  Transmission Date: 20120825
  Serious: Yes (Other)
  Sender: FDA-Public Use
  Company Number: IT-PFIZER INC-2012107380

PATIENT
  Age: 58 Year
  Sex: Male

DRUGS (5)
  1. PLATAMINE [Suspect]
     Indication: ADENOCARCINOMA
     Dosage: 129 MG, CYCLIC
     Route: 042
     Dates: start: 20120101, end: 20120423
  2. EMEND [Concomitant]
     Dosage: 125MG, 1 DOSAGE UNIT
     Route: 048
  3. MAGNESIUM SULFATE [Concomitant]
     Dosage: UNK
  4. ZOFRAN [Concomitant]
     Dosage: 8 MG, UNK
     Route: 042
  5. LASIX [Concomitant]
     Dosage: 1 DOSAGE UNIT
     Route: 042

REACTIONS (6)
  - DYSPNOEA [None]
  - OEDEMA [None]
  - ASTHENIA [None]
  - HYPERHIDROSIS [None]
  - PRURITUS [None]
  - PARAESTHESIA [None]
